FAERS Safety Report 7641133-6 (Version None)
Quarter: 2011Q3

REPORT INFORMATION
  Report Type: 
  Country: None (occurrence: None)
  Receive Date: 20110728
  Receipt Date: 20110720
  Transmission Date: 20111222
  Serious: Yes (Other)
  Sender: FDA-Public Use
  Company Number: US-SANOFI-AVENTIS-2011SA029412

PATIENT

DRUGS (1)
  1. FERRLECIT [Suspect]
     Route: 051
     Dates: end: 20110301

REACTIONS (1)
  - SERUM FERRITIN INCREASED [None]
